FAERS Safety Report 6934856-5 (Version None)
Quarter: 2010Q3

REPORT INFORMATION
  Report Type: 
  Country: None (occurrence: None)
  Receive Date: 20100820
  Receipt Date: 20100806
  Transmission Date: 20110219
  Serious: Yes (Other)
  Sender: FDA-Public Use
  Company Number: PHHY2010BE06938

PATIENT
  Sex: Male

DRUGS (4)
  1. ZOMETA [Suspect]
     Indication: RENAL CANCER
     Dosage: 4 MG, QMO
     Dates: start: 20090601
  2. ZOMETA [Suspect]
     Dosage: 4 MG MONTHLY
  3. CORTICOSTEROIDS [Concomitant]
     Dosage: UNK
     Dates: start: 20090601
  4. SUTENT [Concomitant]
     Dosage: UNK
     Dates: start: 20090801

REACTIONS (6)
  - APHTHOUS STOMATITIS [None]
  - BONE DISORDER [None]
  - METASTASES TO BONE [None]
  - METASTASES TO CENTRAL NERVOUS SYSTEM [None]
  - OSTEONECROSIS OF JAW [None]
  - PAIN [None]
